FAERS Safety Report 5256882-7 (Version None)
Quarter: 2007Q1

REPORT INFORMATION
  Report Type: 
  Country: None (occurrence: None)
  Receive Date: 20070306
  Receipt Date: 20070301
  Transmission Date: 20070707
  Serious: Yes (Hospitalization)
  Sender: FDA-Public Use
  Company Number: PL-MERCK-0703POL00002

PATIENT
  Age: 9 Year
  Sex: Male
  Weight: 30 kg

DRUGS (2)
  1. SINGULAIR [Suspect]
     Indication: ASTHMA
     Route: 048
     Dates: start: 20060207, end: 20060209
  2. SINGULAIR [Suspect]
     Route: 048
     Dates: start: 20060217, end: 20060219

REACTIONS (2)
  - HEADACHE [None]
  - PAIN IN EXTREMITY [None]
